FAERS Safety Report 12311701 (Version 1)
Quarter: 2016Q2

REPORT INFORMATION
  Report Type: Spontaneous
  Country: US (occurrence: US)
  Receive Date: 20160427
  Receipt Date: 20160427
  Transmission Date: 20160815
  Serious: No
  Sender: FDA-Public Use
  Company Number: US-FRESENIUS KABI-FK201602163

PATIENT
  Sex: Female

DRUGS (2)
  1. WARFARIN [Concomitant]
     Active Substance: WARFARIN
     Indication: PRODUCT USED FOR UNKNOWN INDICATION
     Route: 065
  2. METHOTREXATE FOR INJECTION, USP [Suspect]
     Active Substance: METHOTREXATE
     Indication: RHEUMATOID ARTHRITIS
     Route: 048

REACTIONS (4)
  - Off label use [Recovered/Resolved]
  - Weight decreased [Recovered/Resolved]
  - Incorrect route of drug administration [Recovered/Resolved]
  - Malaise [Recovered/Resolved]
